FAERS Safety Report 17039864 (Version 1)
Quarter: 2019Q4

REPORT INFORMATION
  Report Type: Spontaneous
  Country: NL (occurrence: NL)
  Receive Date: 20191116
  Receipt Date: 20191116
  Transmission Date: 20200122
  Serious: Yes (Other)
  Sender: FDA-Public Use
  Company Number: NL-AUROBINDO-AUR-APL-2019-072016

PATIENT
  Sex: Female
  Weight: 49 kg

DRUGS (1)
  1. DROSPIRENON/ETHINYLESTRADIOL AUROBINDO 3/0.03 MG [Suspect]
     Active Substance: DROSPIRENONE\ETHINYL ESTRADIOL
     Indication: CONTRACEPTION
     Dosage: 1 DOSAGE FORM (1X PER DAY 1 PIECE)
     Route: 048
     Dates: start: 20190319, end: 20191015

REACTIONS (5)
  - Headache [Recovered/Resolved]
  - Nausea [Recovered/Resolved]
  - Cellulitis [Not Recovered/Not Resolved]
  - Varicose vein [Not Recovered/Not Resolved]
  - Alopecia [Not Recovered/Not Resolved]
